FAERS Safety Report 8478142-3 (Version None)
Quarter: 2012Q2

REPORT INFORMATION
  Report Type: 
  Country: None (occurrence: None)
  Receive Date: 20120629
  Receipt Date: 20120619
  Transmission Date: 20120825
  Serious: Yes (Other)
  Sender: FDA-Public Use
  Company Number: PHHY2012MX053735

PATIENT
  Sex: Male

DRUGS (2)
  1. ONBREZ [Suspect]
     Indication: CHRONIC OBSTRUCTIVE PULMONARY DISEASE
     Dosage: 1 DF, QD
     Dates: start: 20120301
  2. MICARDIS [Concomitant]
     Dates: start: 20100101

REACTIONS (4)
  - RESTLESSNESS [None]
  - DYSPNOEA [None]
  - ASTHMA [None]
  - DRUG INEFFECTIVE [None]
